FAERS Safety Report 7833707-4 (Version None)
Quarter: 2011Q4

REPORT INFORMATION
  Report Type: 
  Country: None (occurrence: None)
  Receive Date: 20111024
  Receipt Date: 20111019
  Transmission Date: 20120403
  Serious: Yes (Hospitalization, Other)
  Sender: FDA-Public Use
  Company Number: US-SANOFI-AVENTIS-2011SA069241

PATIENT
  Age: 21 Year
  Sex: Male

DRUGS (5)
  1. LOVENOX [Suspect]
     Indication: DEEP VEIN THROMBOSIS
     Route: 065
  2. ROCEPHIN [Suspect]
     Indication: EAR INFECTION
     Route: 065
     Dates: start: 20110922, end: 20110926
  3. LOVENOX [Suspect]
     Route: 065
     Dates: start: 20110925
  4. WARFARIN SODIUM [Suspect]
     Indication: DEEP VEIN THROMBOSIS
     Route: 048
     Dates: start: 20110901, end: 20110925
  5. ALL OTHER THERAPEUTIC PRODUCTS [Concomitant]

REACTIONS (2)
  - DRUG LEVEL DECREASED [None]
  - STATUS EPILEPTICUS [None]
